FAERS Safety Report 5766951-0 (Version None)
Quarter: 2008Q2

REPORT INFORMATION
  Report Type: 
  Country: None (occurrence: None)
  Receive Date: 20080609
  Receipt Date: 20080523
  Transmission Date: 20081010
  Serious: Yes (Hospitalization)
  Sender: FDA-Public Use
  Company Number: 07-001655

PATIENT
  Age: 29 Year
  Sex: Male

DRUGS (3)
  1. DURICEF [Suspect]
     Dosage: ORAL
     Route: 048
  2. COLD REMEDY / NON-PYRINE COLD PREPARATION (NON-BMS)() [Suspect]
     Dosage: ORAL
     Route: 048
  3. STOMACHIC AND DIGESTIVES (NON-BMS)() [Suspect]
     Dosage: ORAL
     Route: 048

REACTIONS (3)
  - HEPATIC FUNCTION ABNORMAL [None]
  - PANCREATITIS [None]
  - TOXIC EPIDERMAL NECROLYSIS [None]
